FAERS Safety Report 5202470-8 (Version None)
Quarter: 2006Q4

REPORT INFORMATION
  Report Type: 
  Country: None (occurrence: None)
  Receive Date: 20061010
  Receipt Date: 20060706
  Transmission Date: 20070319
  Serious: Yes (Death)
  Sender: FDA-Public Use
  Company Number: 2006P1000359

PATIENT
  Age: 54 Year
  Weight: 86 kg

DRUGS (3)
  1. RETEPLASE (RETEPLASE) [Suspect]
     Indication: ACUTE MYOCARDIAL INFARCTION
     Dosage: 5 IU; X2; IV
     Route: 042
  2. ABCIXIMAB (ABCIXIMAB) [Suspect]
     Indication: ACUTE MYOCARDIAL INFARCTION
     Dosage: SEE IMAGE, IV
     Route: 042
  3. HEPARIN [Concomitant]

REACTIONS (1)
  - CARDIOGENIC SHOCK [None]
